FAERS Safety Report 4885025-4 (Version None)
Quarter: 2006Q1

REPORT INFORMATION
  Report Type: 
  Country: None (occurrence: None)
  Receive Date: 20060119
  Receipt Date: 20050909
  Transmission Date: 20060701
  Serious: Yes (Hospitalization, Disabling, Other)
  Sender: FDA-Public Use
  Company Number: US-MERCK-0509USA01660

PATIENT
  Age: 59 Year
  Sex: Female
  Weight: 73 kg

DRUGS (17)
  1. VIOXX [Suspect]
     Indication: BACK PAIN
     Route: 048
     Dates: start: 19990101, end: 20041001
  2. VIOXX [Suspect]
     Route: 048
     Dates: start: 19990301, end: 20041001
  3. LANSOPRAZOLE [Concomitant]
     Route: 065
  4. METOPROLOL [Concomitant]
     Route: 065
  5. WARFARIN [Concomitant]
     Route: 065
  6. ESTRADIOL [Concomitant]
     Route: 065
  7. DILTIAZEM HYDROCHLORIDE [Concomitant]
     Route: 065
  8. DEPTRAN (DOXEPIN HYDROCHLORIDE) [Concomitant]
     Route: 065
  9. ZOCOR [Concomitant]
     Route: 065
  10. NORVASC [Concomitant]
     Route: 065
  11. [THERAPY UNSPECIFIED] [Concomitant]
     Route: 065
  12. FUROSEMIDE [Concomitant]
     Route: 065
  13. COUMADIN [Concomitant]
     Route: 065
  14. [THERAPY UNSPECIFIED] [Concomitant]
     Route: 065
  15. TOPROL-XL [Concomitant]
     Route: 065
  16. FLONASE [Concomitant]
     Route: 065
  17. PREMARIN [Concomitant]
     Route: 065

REACTIONS (12)
  - ARRHYTHMIA [None]
  - CARDIAC DISORDER [None]
  - CHEST PAIN [None]
  - CHRONIC FATIGUE SYNDROME [None]
  - CORONARY ARTERY DISEASE [None]
  - CORONARY ARTERY OCCLUSION [None]
  - HEADACHE [None]
  - MYOCARDIAL INFARCTION [None]
  - OEDEMA [None]
  - PROPHYLAXIS [None]
  - TRANSIENT ISCHAEMIC ATTACK [None]
  - VERTIGO [None]
